FAERS Safety Report 5382870-6 (Version None)
Quarter: 2007Q3

REPORT INFORMATION
  Report Type: 
  Country: None (occurrence: None)
  Receive Date: 20070702
  Receipt Date: 20070419
  Transmission Date: 20080115
  Serious: No
  Sender: FDA-Public Use
  Company Number: 2007PV032837

PATIENT
  Age: 77 Year
  Sex: Female

DRUGS (4)
  1. SYMLIN [Suspect]
     Indication: TYPE 2 DIABETES MELLITUS
     Dosage: 60 MCG;TID;SC
     Route: 058
     Dates: start: 20070301
  2. NPH [Concomitant]
  3. LIPITOR [Concomitant]
  4. HUMALOG [Concomitant]

REACTIONS (2)
  - INJECTION SITE BRUISING [None]
  - INJECTION SITE PAIN [None]
